FAERS Safety Report 4402862-0 (Version None)
Quarter: 2004Q3

REPORT INFORMATION
  Report Type: 
  Country: None (occurrence: None)
  Receive Date: 20040721
  Receipt Date: 20040712
  Transmission Date: 20050211
  Serious: Yes (Hospitalization)
  Sender: FDA-Public Use
  Company Number: 200415218US

PATIENT
  Sex: Female

DRUGS (10)
  1. AMARYL [Suspect]
     Indication: DIABETES MELLITUS NON-INSULIN-DEPENDENT
     Dosage: DOSE: NOT PROVIDED
     Dates: start: 20040601
  2. MEMANTINE [Suspect]
     Indication: DEMENTIA
     Route: 048
     Dates: start: 20040601, end: 20040601
  3. EFFEXOR [Concomitant]
     Dosage: DOSE: NOT PROVIDED
  4. ARICEPT [Concomitant]
     Dosage: DOSE: NOT PROVIDED
  5. METFORMIN HCL [Concomitant]
     Dosage: DOSE: NOT PROVIDED
  6. SYNTHROID [Concomitant]
     Dosage: DOSE: NOT PROVIDED
  7. FAMOTIDINE [Concomitant]
     Dosage: DOSE: NOT PROVIDED
  8. LIPITOR [Concomitant]
     Dosage: DOSE: NOT PROVIDED
  9. DIOVAN [Concomitant]
     Dosage: DOSE: NOT PROVIDED
  10. PLAVIX [Concomitant]
     Dosage: DOSE: NOT PROVIDED

REACTIONS (6)
  - BLOOD POTASSIUM DECREASED [None]
  - BLOOD SODIUM DECREASED [None]
  - DIARRHOEA [None]
  - NAUSEA [None]
  - URINARY TRACT INFECTION [None]
  - VOMITING [None]
